FAERS Safety Report 4397656-9 (Version None)
Quarter: 2004Q3

REPORT INFORMATION
  Report Type: 
  Country: None (occurrence: None)
  Receive Date: 20040713
  Receipt Date: 20040630
  Transmission Date: 20050211
  Serious: Yes (Other)
  Sender: FDA-Public Use
  Company Number: HQWYE528421JUN04

PATIENT
  Age: 25 Year
  Sex: Female

DRUGS (3)
  1. EFFEXOR XR [Suspect]
     Indication: MAJOR DEPRESSION
     Dosage: DOSE INCREASED TO 375MG DLY ORAL
     Route: 048
     Dates: start: 20040301
  2. FLUOXETINE HYDROCHLORIDE [Concomitant]
  3. REMERON [Concomitant]

REACTIONS (3)
  - DRUG INEFFECTIVE [None]
  - FEELING GUILTY [None]
  - SUICIDAL IDEATION [None]
